FAERS Safety Report 7723879-4 (Version None)
Quarter: 2011Q3

REPORT INFORMATION
  Report Type: 
  Country: None (occurrence: None)
  Receive Date: 20110901
  Receipt Date: 20110822
  Transmission Date: 20111222
  Serious: Yes (Other)
  Sender: FDA-Public Use
  Company Number: HK-TYCO HEALTHCARE/MALLINCKRODT-T201101652

PATIENT
  Age: 30 Month

DRUGS (1)
  1. METHADOSE [Suspect]

REACTIONS (2)
  - DIABETIC HYPERGLYCAEMIC COMA [None]
  - OVERDOSE [None]
